FAERS Safety Report 18173276 (Version 3)
Quarter: 2020Q3

REPORT INFORMATION
  Report Type: Report from Study
  Country: IL (occurrence: IL)
  Receive Date: 20200819
  Receipt Date: 20200909
  Transmission Date: 20201103
  Serious: Yes (Hospitalization)
  Sender: FDA-Public Use
  Company Number: IL-KARYOPHARM THERAPEUTICS, INC.-2020KPT000891

PATIENT
  Age: 75 Year
  Sex: Male

DRUGS (24)
  1. DIPHTHERIA AND TETANUS TOXOIDS [Concomitant]
     Active Substance: DIPHTHERIA AND TETANUS TOXOIDS
     Indication: PROPHYLAXIS
     Dosage: 0.5 ML, SINGLE
     Route: 030
     Dates: start: 20200723, end: 20200723
  2. ALLORIL [Concomitant]
     Active Substance: ALLOPURINOL
     Dosage: 200 MG, PRN
     Route: 048
     Dates: start: 20200726, end: 20200730
  3. CEFTRIAXONE. [Concomitant]
     Active Substance: CEFTRIAXONE
     Indication: SEPSIS
     Dosage: 2 G, QD
     Route: 042
     Dates: start: 20200728, end: 20200730
  4. SELINEXOR [Suspect]
     Active Substance: SELINEXOR
     Indication: PLASMA CELL MYELOMA
     Dosage: 100 MG, WEEKLY
     Route: 048
     Dates: start: 20200722
  5. SPIRONOLACTONE. [Concomitant]
     Active Substance: SPIRONOLACTONE
     Indication: MYOCARDIAL ISCHAEMIA
     Dosage: 25 MG, QD
     Route: 048
     Dates: start: 20151029
  6. TRITACE [Concomitant]
     Active Substance: RAMIPRIL
     Indication: HYPERTENSION
     Dosage: 5 MG, QD
     Route: 048
     Dates: start: 20081123
  7. ZALDIAR [Concomitant]
     Active Substance: ACETAMINOPHEN\TRAMADOL HYDROCHLORIDE
     Indication: BACK PAIN
     Dosage: 1 DF, PRN
     Route: 048
     Dates: start: 20200719
  8. SODIUM CHLORIDE. [Concomitant]
     Active Substance: SODIUM CHLORIDE
     Dosage: 500 ML, PRN
     Route: 042
     Dates: start: 20200724, end: 20200726
  9. OPTALGIN [Concomitant]
     Active Substance: METAMIZOLE
     Indication: PYREXIA
     Dosage: 1000 MG, SINGLE
     Route: 042
     Dates: start: 20200723, end: 20200723
  10. BORTEZOMIB. [Suspect]
     Active Substance: BORTEZOMIB
     Indication: PLASMA CELL MYELOMA
     Dosage: 1.3 MG/M2, WEEKLY
     Route: 058
     Dates: start: 20200722
  11. RESPRIM M [Concomitant]
     Indication: INFECTION PROPHYLAXIS
     Dosage: 960 MG, 2X/WEEK
     Route: 048
     Dates: start: 20151106
  12. MICROPIRIN [Concomitant]
     Active Substance: ASPIRIN
     Indication: MYOCARDIAL ISCHAEMIA
     Dosage: 100 MG, QD
     Route: 048
     Dates: start: 20160505
  13. APIDRA [Concomitant]
     Active Substance: INSULIN GLULISINE
     Indication: DIABETES MELLITUS
     Dosage: 3 IU, 2X/WEEK
     Route: 058
     Dates: start: 20200726, end: 20200729
  14. SODIUM CHLORIDE. [Concomitant]
     Active Substance: SODIUM CHLORIDE
     Indication: ACUTE KIDNEY INJURY
     Dosage: 1000 ML, SINGLE
     Route: 042
     Dates: start: 20200723, end: 20200723
  15. OPTALGIN [Concomitant]
     Active Substance: METAMIZOLE
     Indication: BACK PAIN
  16. ACAMOL [Concomitant]
     Active Substance: ACETAMINOPHEN
     Indication: PYREXIA
  17. DEXAMETHASONE. [Suspect]
     Active Substance: DEXAMETHASONE
     Indication: PLASMA CELL MYELOMA
     Dosage: 40 MG, WEEKLY
     Route: 048
     Dates: start: 20200722
  18. FAMOTIDINE. [Concomitant]
     Active Substance: FAMOTIDINE
     Indication: GASTROOESOPHAGEAL REFLUX PROPHYLAXIS
     Dosage: 40 MG, QD
     Route: 048
     Dates: start: 20080916
  19. ACYCLOVIR. [Concomitant]
     Active Substance: ACYCLOVIR
     Indication: ANTIVIRAL PROPHYLAXIS
     Dosage: 400 MG, QD
     Route: 048
     Dates: start: 20160105
  20. ALLORIL [Concomitant]
     Active Substance: ALLOPURINOL
     Indication: ACUTE KIDNEY INJURY
     Dosage: 300 MG, PRN
     Route: 048
     Dates: start: 20200724, end: 20200725
  21. LEVEMIR [Concomitant]
     Active Substance: INSULIN DETEMIR
     Indication: DIABETES MELLITUS
     Dosage: 50 IU, PRN
     Route: 058
     Dates: start: 20090219
  22. PIPERACILLIN AND TAZOBACTAM [Concomitant]
     Active Substance: PIPERACILLIN SODIUM\TAZOBACTAM SODIUM
     Indication: SEPSIS
     Dosage: 2.25 G, PRN
     Route: 042
     Dates: start: 20200726, end: 20200728
  23. KAYEXALATE [Concomitant]
     Active Substance: SODIUM POLYSTYRENE SULFONATE
     Indication: ACUTE KIDNEY INJURY
     Dosage: 15 G, SINGLE
     Route: 048
     Dates: start: 20200723, end: 20200723
  24. ACAMOL [Concomitant]
     Active Substance: ACETAMINOPHEN
     Indication: BACK PAIN
     Dosage: 1000 MG, QD
     Route: 048
     Dates: start: 20200726, end: 20200727

REACTIONS (1)
  - Cardiac failure congestive [Recovered/Resolved]

NARRATIVE: CASE EVENT DATE: 20200808
